FAERS Safety Report 13820053 (Version 1)
Quarter: 2017Q3

REPORT INFORMATION
  Report Type: Spontaneous
  Country: US (occurrence: US)
  Receive Date: 20170801
  Receipt Date: 20170801
  Transmission Date: 20171127
  Serious: No
  Sender: FDA-Public Use
  Company Number: None

PATIENT
  Age: 70 Year
  Sex: Female
  Weight: 63 kg

DRUGS (5)
  1. LEVOCITERIZINE [Concomitant]
  2. MELOXICAM. [Concomitant]
     Active Substance: MELOXICAM
  3. XELJANZ [Concomitant]
     Active Substance: TOFACITINIB CITRATE
  4. B6 [Concomitant]
     Active Substance: PYRIDOXINE HYDROCHLORIDE
  5. ISONIAZID. [Suspect]
     Active Substance: ISONIAZID
     Indication: LATENT TUBERCULOSIS
     Route: 048
     Dates: start: 20170728, end: 20170728

REACTIONS (4)
  - Vomiting [None]
  - Malaise [None]
  - Tuberculin test positive [None]
  - Hangover [None]

NARRATIVE: CASE EVENT DATE: 20170728
